FAERS Safety Report 16659676 (Version 1)
Quarter: 2019Q3

REPORT INFORMATION
  Report Type: Spontaneous
  Country: NL (occurrence: NL)
  Receive Date: 20190802
  Receipt Date: 20190802
  Transmission Date: 20191004
  Serious: Yes (Hospitalization, Other)
  Sender: FDA-Public Use
  Company Number: NL-009507513-1907NLD014329

PATIENT
  Age: 56 Year
  Sex: Female

DRUGS (11)
  1. QUETIAPINE FUMARATE. [Suspect]
     Active Substance: QUETIAPINE FUMARATE
     Indication: SLEEP DISORDER
     Dosage: 25 MILLIGRAM, QD
     Dates: start: 201705
  2. PANTOPRAZOLE [Concomitant]
     Active Substance: PANTOPRAZOLE
     Dosage: 40 MILLIGRAM, QD
     Dates: start: 201705
  3. LABETALOL [Concomitant]
     Active Substance: LABETALOL\LABETALOL HYDROCHLORIDE
     Indication: HYPERTENSION
     Dosage: 1 DOSAGE FORM, AS NECESSARY
  4. OXAZEPAM. [Interacting]
     Active Substance: OXAZEPAM
     Dosage: 10 MILLIGRAM, (80 TO 90 MG)
  5. ASPIRIN. [Interacting]
     Active Substance: ASPIRIN
     Dosage: 80 MILLIGRAM, QD
     Dates: start: 201705
  6. FOSINOPRIL SODIUM. [Interacting]
     Active Substance: FOSINOPRIL SODIUM
     Dosage: 10 MILLIGRAM, QD
     Dates: start: 201705
  7. SYNAPAUSE [Concomitant]
     Dosage: 1 DOSAGE FORM, QD
  8. SIMVASTATIN. [Suspect]
     Active Substance: SIMVASTATIN
     Dosage: 40 MILLIGRAM, QD
     Dates: start: 201705
  9. TRANYLCYPROMINE [Interacting]
     Active Substance: TRANYLCYPROMINE
     Indication: DEPRESSION
     Dosage: 50 MILLIGRAM; 20-10-10-10 MG; 40 OR 80 MG DECRIBED
     Dates: start: 2016
  10. OXAZEPAM. [Interacting]
     Active Substance: OXAZEPAM
     Dosage: 40 MILLIGRAM, QD
     Dates: start: 20170501
  11. BRILIQUE [Concomitant]
     Active Substance: TICAGRELOR
     Dosage: 90 MILLIGRAM, BID
     Dates: start: 201705

REACTIONS (15)
  - Therapeutic response unexpected [Unknown]
  - Sleep disorder [Recovering/Resolving]
  - Blood pressure diastolic increased [Unknown]
  - Suicidal ideation [Unknown]
  - Weight increased [Not Recovered/Not Resolved]
  - Myocardial infarction [Unknown]
  - Insomnia [Not Recovered/Not Resolved]
  - Orthostatic hypotension [Unknown]
  - Alopecia [Not Recovered/Not Resolved]
  - Contraindicated product administered [Unknown]
  - Hypertensive crisis [Unknown]
  - Left ventricular dysfunction [Not Recovered/Not Resolved]
  - Potentiating drug interaction [Unknown]
  - Depression [Recovering/Resolving]
  - Bradycardia [Unknown]

NARRATIVE: CASE EVENT DATE: 20170514
